FAERS Safety Report 4396557-X (Version None)
Quarter: 2004Q2

REPORT INFORMATION
  Report Type: 
  Country: None (occurrence: None)
  Receive Date: 20040621
  Receipt Date: 20020501
  Transmission Date: 20050107
  Serious: Yes (Death)
  Sender: FDA-Public Use
  Company Number: USA-2002-0000928

PATIENT
  Age: 50 Year
  Sex: Male
  Weight: 84.4 kg

DRUGS (5)
  1. OXYCONTIN [Suspect]
  2. OXYCODONE HCL [Concomitant]
  3. ALPRAZOLAM [Suspect]
  4. DIAZEPAM [Suspect]
  5. COCAINE (COCAINE) [Suspect]

REACTIONS (1)
  - MULTIPLE DRUG OVERDOSE ACCIDENTAL [None]
